FAERS Safety Report 22624133 (Version 1)
Quarter: 2023Q2

REPORT INFORMATION
  Report Type: Spontaneous
  Country: US (occurrence: US)
  Receive Date: 20230621
  Receipt Date: 20230621
  Transmission Date: 20230721
  Serious: No
  Sender: FDA-Public Use
  Company Number: US-BEH-2023159973

PATIENT
  Age: 9 Year
  Sex: Male

DRUGS (1)
  1. PRIVIGEN [Suspect]
     Active Substance: HUMAN IMMUNOGLOBULIN G
     Indication: Seasonal affective disorder
     Dosage: 17 GRAM, EVERY 28 DAYS
     Route: 042

REACTIONS (4)
  - Abdominal discomfort [Unknown]
  - Abdominal distension [Unknown]
  - No adverse event [Unknown]
  - Off label use [Unknown]
